FAERS Safety Report 18096162 (Version 2)
Quarter: 2020Q3

REPORT INFORMATION
  Report Type: Spontaneous
  Country: BR (occurrence: BR)
  Receive Date: 20200731
  Receipt Date: 20200805
  Transmission Date: 20201103
  Serious: Yes (Other)
  Sender: FDA-Public Use
  Company Number: BR-SA-2020SA194720

PATIENT

DRUGS (3)
  1. GLIFAGE [Concomitant]
     Active Substance: METFORMIN HYDROCHLORIDE
     Indication: BLOOD GLUCOSE INCREASED
     Dosage: 2 PILLS PER DAY
     Route: 048
     Dates: start: 2004
  2. NOVORAPID [Concomitant]
     Active Substance: INSULIN ASPART
     Indication: BLOOD GLUCOSE INCREASED
     Dosage: 5 TIMES A DAY 14 UNITS
     Route: 058
     Dates: start: 2013
  3. LANTUS [Suspect]
     Active Substance: INSULIN GLARGINE
     Indication: DIABETES MELLITUS
     Dosage: 3 TIMES A DAY (36 IU IN THE MORNING 16 IU AFTER LUNCH AFTER 16 IU AFTER DINNER)
     Route: 058
     Dates: start: 2012

REACTIONS (4)
  - Multiple use of single-use product [Unknown]
  - Inappropriate schedule of product administration [Unknown]
  - Hyperglycaemic unconsciousness [Unknown]
  - Diabetic hyperglycaemic coma [Unknown]

NARRATIVE: CASE EVENT DATE: 2018
